FAERS Safety Report 22325699 (Version 3)
Quarter: 2023Q2

REPORT INFORMATION
  Report Type: Spontaneous
  Country: CZ (occurrence: None)
  Receive Date: 20230516
  Receipt Date: 20230609
  Transmission Date: 20230722
  Serious: Yes (Life-Threatening, Hospitalization, Other)
  Sender: FDA-Public Use
  Company Number: 2023A112244

PATIENT
  Sex: Female
  Weight: 52 kg

DRUGS (4)
  1. DURVALUMAB [Suspect]
     Active Substance: DURVALUMAB
     Route: 042
  2. IMFINZI [Suspect]
     Active Substance: DURVALUMAB
     Indication: Cholangiocarcinoma
     Route: 042
     Dates: start: 20230413
  3. GEMCITABINE [Concomitant]
     Active Substance: GEMCITABINE
     Dosage: UNKNOWN
  4. CISPLATIN [Concomitant]
     Active Substance: CISPLATIN
     Dosage: UNKNOWN

REACTIONS (6)
  - Hyperglycaemia [Unknown]
  - Coma [Unknown]
  - Type 1 diabetes mellitus [Unknown]
  - Diabetes mellitus [Unknown]
  - Ketoacidosis [Unknown]
  - Acute kidney injury [Unknown]
